FAERS Safety Report 21583483 (Version 1)
Quarter: 2022Q4

REPORT INFORMATION
  Report Type: Spontaneous
  Country: IT (occurrence: IT)
  Receive Date: 20221111
  Receipt Date: 20221111
  Transmission Date: 20230113
  Serious: Yes (Other)
  Sender: FDA-Public Use
  Company Number: IT-SUN PHARMACEUTICAL INDUSTRIES LTD-2022RR-363517

PATIENT
  Age: 80 Year
  Sex: Male

DRUGS (1)
  1. DONEPEZIL [Suspect]
     Active Substance: DONEPEZIL
     Indication: Dementia Alzheimer^s type
     Dosage: 5 MILLIGRAM, QD
     Route: 065

REACTIONS (1)
  - Hallucination, visual [Recovered/Resolved]
